FAERS Safety Report 5075274-7 (Version None)
Quarter: 2006Q3

REPORT INFORMATION
  Report Type: 
  Country: None (occurrence: None)
  Receive Date: 20060809
  Receipt Date: 20051117
  Transmission Date: 20061208
  Serious: No
  Sender: FDA-Public Use
  Company Number: US-AMGEN-KDL158429

PATIENT
  Age: 63 Year
  Sex: Female
  Weight: 116.2 kg

DRUGS (11)
  1. PROCRIT [Suspect]
     Indication: RENAL FAILURE CHRONIC
     Dates: start: 20050901
  2. ASPIRIN [Concomitant]
  3. ACTOS [Concomitant]
  4. AVAPRO [Concomitant]
  5. IRON [Concomitant]
  6. HYDRALAZINE HYDROCHLORIDE [Concomitant]
  7. NORVASC [Concomitant]
  8. PLAVIX [Concomitant]
  9. PROTONIX [Concomitant]
  10. TOPROL-XL [Concomitant]
  11. ZOCOR [Concomitant]

REACTIONS (1)
  - PLATELET COUNT INCREASED [None]
